FAERS Safety Report 9605987 (Version 1)
Quarter: 2013Q4

REPORT INFORMATION
  Report Type: Spontaneous
  Country: US (occurrence: US)
  Receive Date: 20131008
  Receipt Date: 20131008
  Transmission Date: 20140711
  Serious: No
  Sender: FDA-Public Use
  Company Number: US-AMGEN-USASP2013038097

PATIENT
  Age: 74 Year
  Sex: Female

DRUGS (9)
  1. PROLIA [Suspect]
     Indication: PRODUCT USED FOR UNKNOWN INDICATION
  2. PREDNISONE [Concomitant]
  3. ADVAIR [Concomitant]
  4. SINGULAIR [Concomitant]
  5. FORADIL [Concomitant]
  6. BUDESONIDE [Concomitant]
  7. ALBUTEROL                          /00139501/ [Concomitant]
  8. IPRATROPIUM [Concomitant]
  9. CLOPIDOGREL [Concomitant]

REACTIONS (2)
  - Joint crepitation [Unknown]
  - Pain in jaw [Unknown]
